FAERS Safety Report 8555560-6 (Version None)
Quarter: 2012Q3

REPORT INFORMATION
  Report Type: 
  Country: None (occurrence: None)
  Receive Date: 20120731
  Receipt Date: 20120501
  Transmission Date: 20120928
  Serious: No
  Sender: FDA-Public Use
  Company Number: US-ASTRAZENECA-2011SE00738

PATIENT
  Age: 773 Month
  Sex: Female
  Weight: 65.8 kg

DRUGS (5)
  1. PROZAC [Concomitant]
  2. SEROQUEL [Suspect]
     Route: 048
     Dates: start: 20101217, end: 20101201
  3. SEROQUEL [Suspect]
     Indication: BIPOLAR DISORDER
     Route: 048
     Dates: start: 20100401, end: 20101217
  4. SEROQUEL [Suspect]
     Route: 048
  5. PREMPRO [Concomitant]

REACTIONS (14)
  - MOOD SWINGS [None]
  - DECREASED APPETITE [None]
  - TOOTHACHE [None]
  - GINGIVAL PAIN [None]
  - OEDEMA MOUTH [None]
  - ANXIETY [None]
  - ORAL PAIN [None]
  - THIRST [None]
  - THROAT TIGHTNESS [None]
  - DIARRHOEA [None]
  - SLEEP DISORDER DUE TO A GENERAL MEDICAL CONDITION [None]
  - INTENTIONAL DRUG MISUSE [None]
  - PROCEDURAL PAIN [None]
  - LETHARGY [None]
